FAERS Safety Report 16638894 (Version 2)
Quarter: 2020Q1

REPORT INFORMATION
  Report Type: Spontaneous
  Country: US (occurrence: US)
  Receive Date: 20190726
  Receipt Date: 20200130
  Transmission Date: 20200409
  Serious: Yes (Hospitalization, Other)
  Sender: FDA-Public Use
  Company Number: US-PFIZER INC-2019316018

PATIENT
  Age: 41 Year
  Sex: Male

DRUGS (4)
  1. FENTANYL CITRATE. [Suspect]
     Active Substance: FENTANYL CITRATE
     Dosage: UNK
     Route: 042
     Dates: start: 20190627
  2. NALOXONE HCL [Suspect]
     Active Substance: NALOXONE HYDROCHLORIDE
     Dosage: 1 MG, UNK
     Route: 042
     Dates: start: 20190627
  3. KLONOPIN [Suspect]
     Active Substance: CLONAZEPAM
     Dosage: 2 MG, DAILY
  4. SEROQUEL [Suspect]
     Active Substance: QUETIAPINE FUMARATE
     Dosage: 100 MG, 1X/DAY

REACTIONS (8)
  - Headache [Unknown]
  - Feeling cold [Recovering/Resolving]
  - Respiratory arrest [Unknown]
  - Drug abuse [Unknown]
  - Cyanosis [Unknown]
  - Pharyngeal mass [Unknown]
  - Overdose [Unknown]
  - Dysphagia [Unknown]

NARRATIVE: CASE EVENT DATE: 201906
